FAERS Safety Report 12420929 (Version 1)
Quarter: 2016Q2

REPORT INFORMATION
  Report Type: Report from Study
  Country: US (occurrence: US)
  Receive Date: 20160531
  Receipt Date: 20160531
  Transmission Date: 20160815
  Serious: Yes (Other)
  Sender: FDA-Public Use
  Company Number: US-009507513-1605USA014151

PATIENT
  Age: 38 Year
  Sex: Female

DRUGS (1)
  1. KEYTRUDA [Suspect]
     Active Substance: PEMBROLIZUMAB
     Indication: GASTRIC CANCER
     Dosage: UNK
     Route: 042
     Dates: start: 201605

REACTIONS (5)
  - Drug dose omission [Unknown]
  - Adverse event [Unknown]
  - Product use issue [Unknown]
  - Malaise [Unknown]
  - Surgery [Unknown]

NARRATIVE: CASE EVENT DATE: 20160524
